FAERS Safety Report 10599014 (Version 1)
Quarter: 2014Q4

REPORT INFORMATION
  Report Type: Spontaneous
  Country: US (occurrence: US)
  Receive Date: 20141121
  Receipt Date: 20141121
  Transmission Date: 20150529
  Serious: No
  Sender: FDA-Public Use
  Company Number: US-BAYER-2014-169396

PATIENT
  Age: 72 Year
  Sex: Female
  Weight: 55.78 kg

DRUGS (12)
  1. FLONASE [Concomitant]
     Active Substance: FLUTICASONE PROPIONATE
  2. ALEVE [Suspect]
     Active Substance: NAPROXEN SODIUM
     Indication: BACK PAIN
     Dosage: 1 DF, PRN
     Route: 048
     Dates: end: 2013
  3. ALEVE [Suspect]
     Active Substance: NAPROXEN SODIUM
     Indication: PAIN IN EXTREMITY
     Dosage: 2 DF, PRN
     Route: 048
  4. BAYER [Suspect]
     Active Substance: ASPIRIN
     Indication: BACK PAIN
  5. ALEVE [Suspect]
     Active Substance: NAPROXEN SODIUM
     Indication: PAIN IN EXTREMITY
     Dosage: 2 DF, PRN
     Route: 048
  6. BAYER [Suspect]
     Active Substance: ASPIRIN
     Indication: PAIN IN EXTREMITY
     Dosage: 1-2 DF, PRN
     Route: 048
     Dates: start: 2013
  7. ALEVE [Suspect]
     Active Substance: NAPROXEN SODIUM
     Indication: BACK PAIN
     Dosage: 1 DF, PRN
     Route: 048
     Dates: end: 2013
  8. COENZYME Q10 [Concomitant]
     Active Substance: UBIDECARENONE
  9. CHLORPHENIRAMINE [Concomitant]
     Active Substance: CHLORPHENIRAMINE
  10. ESTRADIOL. [Concomitant]
     Active Substance: ESTRADIOL
  11. TIMOLOL [Concomitant]
     Active Substance: TIMOLOL
  12. VITAMIIN C [Concomitant]
     Active Substance: ASCORBIC ACID
     Dosage: 500-1000MGS

REACTIONS (4)
  - Head discomfort [Unknown]
  - Head discomfort [Recovered/Resolved]
  - Tinnitus [Unknown]
  - Asthenia [Recovered/Resolved]

NARRATIVE: CASE EVENT DATE: 2011
